FAERS Safety Report 23442959 (Version 1)
Quarter: 2024Q1

REPORT INFORMATION
  Report Type: Spontaneous
  Country: CH (occurrence: CH)
  Receive Date: 20240125
  Receipt Date: 20240125
  Transmission Date: 20240409
  Serious: Yes (Death, Other)
  Sender: FDA-Public Use
  Company Number: CH-PFIZER INC-202400022569

PATIENT
  Age: 7 Decade
  Sex: Male

DRUGS (3)
  1. DOXYCYCLINE HYCLATE [Suspect]
     Active Substance: DOXYCYCLINE HYCLATE
     Indication: Klebsiella infection
     Dosage: UNK
     Dates: start: 2010
  2. FOSFOMYCIN [Concomitant]
     Active Substance: FOSFOMYCIN
     Indication: Klebsiella infection
     Dosage: UNK
  3. GENTAMICIN [Concomitant]
     Active Substance: GENTAMICIN
     Indication: Klebsiella infection
     Dosage: UNK
     Route: 042

REACTIONS (4)
  - Drug ineffective [Fatal]
  - Drug resistance [Fatal]
  - Multiple organ dysfunction syndrome [Fatal]
  - Intra-abdominal haemorrhage [Fatal]
